FAERS Safety Report 24251417 (Version 2)
Quarter: 2024Q3

REPORT INFORMATION
  Report Type: Spontaneous
  Country: US (occurrence: US)
  Receive Date: 20240826
  Receipt Date: 20240924
  Transmission Date: 20241016
  Serious: No
  Sender: BAUSCH AND LOMB
  Company Number: US-BAUSCHBL-2024BNL031928

PATIENT
  Sex: Male

DRUGS (2)
  1. VYZULTA [Suspect]
     Active Substance: LATANOPROSTENE BUNOD
     Indication: Intraocular pressure test
     Route: 047
     Dates: start: 202408
  2. LATANOPROST [Suspect]
     Active Substance: LATANOPROST
     Indication: Intraocular pressure test
     Route: 065

REACTIONS (4)
  - Drug ineffective [Unknown]
  - Product complaint [Unknown]
  - Inability to afford medication [Unknown]
  - Product use complaint [Unknown]

NARRATIVE: CASE EVENT DATE: 20240801
